FAERS Safety Report 20658126 (Version 1)
Quarter: 2022Q1

REPORT INFORMATION
  Report Type: Spontaneous
  Country: US (occurrence: US)
  Receive Date: 20220331
  Receipt Date: 20220331
  Transmission Date: 20220423
  Serious: Yes (Hospitalization)
  Sender: FDA-Public Use
  Company Number: US-GW PHARMA-202203USGW01548

PATIENT
  Sex: Female
  Weight: 14.966 kg

DRUGS (1)
  1. EPIDIOLEX [Suspect]
     Active Substance: CANNABIDIOL
     Indication: Lennox-Gastaut syndrome
     Dosage: 20.05 MG/KG/DAY, 150 MILLIGRAM, BID
     Route: 048
     Dates: start: 202106

REACTIONS (1)
  - Gastrointestinal disorder [Unknown]
